FAERS Safety Report 4621803-4 (Version None)
Quarter: 2005Q1

REPORT INFORMATION
  Report Type: 
  Country: None (occurrence: None)
  Receive Date: 20050329
  Receipt Date: 20050321
  Transmission Date: 20050727
  Serious: Yes (Hospitalization)
  Sender: FDA-Public Use
  Company Number: IT-ROCHE-399391

PATIENT
  Age: 84 Year
  Sex: Male

DRUGS (2)
  1. ROCEPHIN [Suspect]
     Indication: BRONCHITIS
     Dosage: FORMULATION: VIAL
     Route: 030
     Dates: start: 20050213, end: 20050213
  2. FLUIBRON [Suspect]
     Indication: BRONCHITIS
     Dosage: FORMULATION: VIAL
     Route: 030
     Dates: start: 20050213, end: 20050213

REACTIONS (1)
  - TOXIC EPIDERMAL NECROLYSIS [None]
